FAERS Safety Report 4820300-0 (Version None)
Quarter: 2005Q4

REPORT INFORMATION
  Report Type: 
  Country: None (occurrence: None)
  Receive Date: 20051104
  Receipt Date: 20051020
  Transmission Date: 20060501
  Serious: Yes (Death, Life-Threatening)
  Sender: FDA-Public Use
  Company Number: JP-AVENTIS-200519308GDDC

PATIENT
  Age: 70 Year
  Sex: Male

DRUGS (7)
  1. MINIRIN [Suspect]
     Indication: BRAIN NEOPLASM
     Route: 045
     Dates: start: 20051003, end: 20051004
  2. MINIRIN [Suspect]
     Indication: URINE OUTPUT INCREASED
     Route: 045
     Dates: start: 20051003, end: 20051004
  3. VALPROATE SODIUM [Concomitant]
  4. CLOBAZAM [Concomitant]
  5. CLARITHROMYCIN [Concomitant]
  6. BETAMETHASONE [Concomitant]
  7. DOPAMINE HCL [Concomitant]
     Dates: start: 20050929

REACTIONS (5)
  - BLOOD SODIUM INCREASED [None]
  - DEATH [None]
  - DYSPNOEA [None]
  - HICCUPS [None]
  - VOMITING [None]
